FAERS Safety Report 6773464-6 (Version None)
Quarter: 2010Q2

REPORT INFORMATION
  Report Type: 
  Country: None (occurrence: None)
  Receive Date: 20100616
  Receipt Date: 20100507
  Transmission Date: 20101027
  Serious: No
  Sender: FDA-Public Use
  Company Number: US-ABBOTT-10P-163-0643694-00

PATIENT
  Sex: Male
  Weight: 90.8 kg

DRUGS (2)
  1. TRILIPIX [Suspect]
     Indication: BLOOD CHOLESTEROL INCREASED
     Dates: start: 20090101, end: 20100423
  2. BENAZEPRIL HYDROCHLORIDE [Concomitant]
     Indication: HYPERTENSION

REACTIONS (5)
  - BACK PAIN [None]
  - FOOD INTOLERANCE [None]
  - GASTROINTESTINAL SOUNDS ABNORMAL [None]
  - LIVER INJURY [None]
  - MUSCULAR WEAKNESS [None]
